FAERS Safety Report 13066376 (Version 1)
Quarter: 2016Q4

REPORT INFORMATION
  Report Type: Spontaneous
  Country: US (occurrence: US)
  Receive Date: 20161227
  Receipt Date: 20161227
  Transmission Date: 20170207
  Serious: No
  Sender: FDA-Public Use
  Company Number: US-BAYER-2016-243438

PATIENT
  Age: 20 Year
  Sex: Female
  Weight: 90.25 kg

DRUGS (2)
  1. MIRENA [Suspect]
     Active Substance: LEVONORGESTREL
     Dosage: 20 MCG/24HR, CONT
     Route: 015
     Dates: start: 20120524, end: 201206
  2. MIRENA [Suspect]
     Active Substance: LEVONORGESTREL

REACTIONS (1)
  - Device expulsion [None]

NARRATIVE: CASE EVENT DATE: 201206
